FAERS Safety Report 17333015 (Version 1)
Quarter: 2020Q1

REPORT INFORMATION
  Report Type: Spontaneous
  Country: JP (occurrence: JP)
  Receive Date: 20200128
  Receipt Date: 20200128
  Transmission Date: 20200409
  Serious: Yes (Hospitalization, Other)
  Sender: FDA-Public Use
  Company Number: JP-ALLERGAN-2003342US

PATIENT
  Sex: Male

DRUGS (5)
  1. ATORVASTATIN CALCIUM TABLET [Concomitant]
     Active Substance: ATORVASTATIN CALCIUM
     Dosage: 10 MG, QD
  2. FEBURIC TABLETS [Concomitant]
     Active Substance: FEBUXOSTAT
     Dosage: 5 MG, QD
  3. BOTOX [Suspect]
     Active Substance: ONABOTULINUMTOXINA
     Indication: MUSCLE SPASTICITY
     Dosage: 240 IU, SINGLE
     Route: 030
     Dates: start: 20180723, end: 20180723
  4. FAMOTIDINE D TABLETS [Concomitant]
     Dosage: 20 MG, QD
  5. CLOPIDOGREL SULFATE TABLETS [Concomitant]
     Dosage: 75 MG, QD

REACTIONS (1)
  - Diverticulitis [Recovered/Resolved]

NARRATIVE: CASE EVENT DATE: 20191118
